FAERS Safety Report 9658013 (Version 1)
Quarter: 2013Q4

REPORT INFORMATION
  Report Type: Spontaneous
  Country: NL (occurrence: None)
  Receive Date: 20131029
  Receipt Date: 20131029
  Transmission Date: 20140711
  Serious: Yes (Hospitalization)
  Sender: FDA-Public Use
  Company Number: NL-013388

PATIENT
  Age: 59 Year
  Sex: Female

DRUGS (3)
  1. PICOPREP (PICOPREP) (NOT SPECIFIED) [Suspect]
     Indication: BOWEL PREPARATION
     Route: 048
     Dates: start: 20131006, end: 20131007
  2. BISACODYL [Concomitant]
  3. L-GLUTAMINE [Concomitant]

REACTIONS (7)
  - Depressed level of consciousness [None]
  - Vomiting [None]
  - Drug interaction [None]
  - Dehydration [None]
  - Confusional state [None]
  - Abdominal pain [None]
  - Reaction to drug excipients [None]
